FAERS Safety Report 24212736 (Version 2)
Quarter: 2024Q3

REPORT INFORMATION
  Report Type: Report from Study
  Country: US (occurrence: US)
  Receive Date: 20240815
  Receipt Date: 20240919
  Transmission Date: 20241016
  Serious: No
  Sender: ROCHE
  Company Number: US-ROCHE-10000053902

PATIENT
  Age: 50 Year
  Sex: Male
  Weight: 65.77 kg

DRUGS (9)
  1. OCREVUS [Suspect]
     Active Substance: OCRELIZUMAB
     Indication: Multiple sclerosis
     Dosage: DATE OF TREATMENT: 08-JUN-2020, 10-DEC-2020, 10-JUN-2021, 03-MAR-2022, 26-OCT-2022, 26-APR-2023, 21-
     Route: 042
  2. VITAMIN D2 [Concomitant]
     Active Substance: ERGOCALCIFEROL
  3. VITAMIN D3 [Concomitant]
     Active Substance: CHOLECALCIFEROL
  4. CYANOCOBALAMIN [Concomitant]
     Active Substance: CYANOCOBALAMIN
  5. CLONAZEPAM [Concomitant]
     Active Substance: CLONAZEPAM
  6. DEPAKOTE [Concomitant]
     Active Substance: DIVALPROEX SODIUM
  7. ZOLOFT [Concomitant]
     Active Substance: SERTRALINE HYDROCHLORIDE
  8. DIVALPROEX SODIUM [Concomitant]
     Active Substance: DIVALPROEX SODIUM
  9. IMITREX [Concomitant]
     Active Substance: SUMATRIPTAN SUCCINATE

REACTIONS (18)
  - Depression [Unknown]
  - Paraesthesia [Unknown]
  - Urinary incontinence [Unknown]
  - Fatigue [Unknown]
  - Decreased appetite [Unknown]
  - Memory impairment [Unknown]
  - Asthenia [Unknown]
  - Back pain [Unknown]
  - Encephalopathy [Unknown]
  - Presyncope [Unknown]
  - Lumbar radiculopathy [Unknown]
  - Sleep disorder [Unknown]
  - Bipolar disorder [Unknown]
  - Dysaesthesia [Unknown]
  - Anaemia [Unknown]
  - Muscle spasticity [Unknown]
  - Spinal osteoarthritis [Unknown]
  - Balance disorder [Unknown]
